FAERS Safety Report 7472332-4 (Version None)
Quarter: 2011Q2

REPORT INFORMATION
  Report Type: 
  Country: None (occurrence: None)
  Receive Date: 20110502
  Receipt Date: 20110502
  Transmission Date: 20111010
  Serious: No
  Sender: FDA-Public Use
  Company Number: 2011-00217

PATIENT
  Age: 57 Year
  Sex: Female
  Weight: 61.2356 kg

DRUGS (3)
  1. SYNTHROID [Concomitant]
  2. LOVASTATIN [Concomitant]
  3. ZICAM COLD REMEDY PLUS LIQUI-LOZ [Suspect]
     Dosage: AS DIRECTED, 5 DAYS

REACTIONS (2)
  - AGEUSIA [None]
  - ANOSMIA [None]
